FAERS Safety Report 9271298 (Version 1)
Quarter: 2013Q2

REPORT INFORMATION
  Report Type: Spontaneous
  Country: CH (occurrence: CH)
  Receive Date: 20130506
  Receipt Date: 20130506
  Transmission Date: 20140414
  Serious: Yes (Other)
  Sender: FDA-Public Use
  Company Number: PHHY2013CH043642

PATIENT
  Sex: Female

DRUGS (1)
  1. GILENYA [Suspect]
     Dosage: 0.5 MG, QD
     Route: 048
     Dates: start: 201212

REACTIONS (4)
  - Hepatic pain [Unknown]
  - C-reactive protein increased [Unknown]
  - Transaminases increased [Unknown]
  - Alanine aminotransferase increased [Unknown]
